FAERS Safety Report 5798354-7 (Version None)
Quarter: 2008Q3

REPORT INFORMATION
  Report Type: 
  Country: None (occurrence: None)
  Receive Date: 20080702
  Receipt Date: 20080625
  Transmission Date: 20090109
  Serious: Yes (Hospitalization, Other)
  Sender: FDA-Public Use
  Company Number: US-JNJFOC-20080401515

PATIENT
  Sex: Female

DRUGS (22)
  1. REMICADE [Suspect]
     Route: 042
  2. REMICADE [Suspect]
     Indication: RHEUMATOID ARTHRITIS
     Route: 042
  3. PROTONIX [Concomitant]
  4. MOBIC [Concomitant]
     Route: 048
  5. ASTELIN [Concomitant]
     Route: 045
  6. ATIVAN [Concomitant]
     Route: 048
  7. CARDIZEM CD [Concomitant]
  8. COLACE [Concomitant]
     Route: 048
  9. DIOVAN [Concomitant]
  10. FLONASE [Concomitant]
     Route: 045
  11. HYDROCHLOROTHIAZIDE [Concomitant]
  12. KDUR [Concomitant]
  13. LASIX [Concomitant]
  14. METHOTREXATE [Concomitant]
     Route: 048
  15. PROVENTIL-HFA [Concomitant]
  16. PULMICORT [Concomitant]
  17. ROBINUL FORTE [Concomitant]
  18. SINEMET [Concomitant]
  19. SINGULAIR [Concomitant]
  20. SPIRIVA [Concomitant]
  21. XOPENEX [Concomitant]
     Route: 055
  22. STAHIST [Concomitant]

REACTIONS (7)
  - ASTHMA [None]
  - HEPATIC STEATOSIS [None]
  - HYPERGLYCAEMIA [None]
  - HYPOKALAEMIA [None]
  - LARYNGITIS [None]
  - OEDEMA [None]
  - STAPHYLOCOCCAL INFECTION [None]
